FAERS Safety Report 12903158 (Version 3)
Quarter: 2016Q4

REPORT INFORMATION
  Report Type: Spontaneous
  Country: US (occurrence: US)
  Receive Date: 20161102
  Receipt Date: 20161111
  Transmission Date: 20170207
  Serious: Yes (Other)
  Sender: FDA-Public Use
  Company Number: US-PFIZER INC-2016506174

PATIENT
  Age: 74 Year
  Sex: Female
  Weight: 70 kg

DRUGS (1)
  1. AROMASIN [Suspect]
     Active Substance: EXEMESTANE
     Dosage: UNK

REACTIONS (6)
  - Joint injury [Unknown]
  - Lower limb fracture [Unknown]
  - Accident [Unknown]
  - Fall [Unknown]
  - Meniscus injury [Unknown]
  - Patella fracture [Recovering/Resolving]

NARRATIVE: CASE EVENT DATE: 20160508
